FAERS Safety Report 20178410 (Version 1)
Quarter: 2021Q4

REPORT INFORMATION
  Report Type: Report from Study
  Country: GB (occurrence: GB)
  Receive Date: 20211213
  Receipt Date: 20211213
  Transmission Date: 20220303
  Serious: Yes (Hospitalization)
  Sender: FDA-Public Use
  Company Number: GB-PFIZER INC-202101719982

PATIENT
  Age: 63 Year
  Sex: Male
  Weight: 79.1 kg

DRUGS (2)
  1. ETANERCEPT [Suspect]
     Active Substance: ETANERCEPT
     Indication: Rheumatoid arthritis
     Dosage: UNK
     Route: 058
     Dates: start: 20140715, end: 20210131
  2. METHOTREXATE [Concomitant]
     Active Substance: METHOTREXATE
     Dosage: UNK
     Dates: start: 20170915, end: 20210131

REACTIONS (4)
  - Systemic infection [Unknown]
  - Peripheral ischaemia [Unknown]
  - Thromboembolectomy [Unknown]
  - Fasciotomy [Unknown]

NARRATIVE: CASE EVENT DATE: 20210131
